FAERS Safety Report 8962895 (Version 1)
Quarter: 2012Q4

REPORT INFORMATION
  Report Type: 
  Country: CO (occurrence: CO)
  Receive Date: 20121213
  Receipt Date: 20121213
  Transmission Date: 20130627
  Serious: Yes (Other)
  Sender: FDA-Public Use
  Company Number: CO-PFIZER INC-2012311622

PATIENT
  Age: 73 Year
  Sex: Male

DRUGS (6)
  1. CARDURAN NEO [Suspect]
     Indication: PROPHYLAXIS
     Dosage: 4 mg, 1x/day
     Route: 048
     Dates: start: 2007, end: 201206
  2. CARDURAN NEO [Suspect]
     Dosage: 4 mg, UNK
     Dates: start: 201206
  3. GLIBENCLAMIDE [Concomitant]
     Indication: DIABETES
     Dosage: UNK
     Route: 048
     Dates: start: 2006
  4. ENALAPRIL [Concomitant]
     Indication: HYPERTENSION
     Dosage: UNK
     Route: 048
     Dates: start: 1972
  5. LOVASTATIN [Concomitant]
     Dosage: UNK
     Route: 048
     Dates: start: 2006
  6. ASAWIN [Concomitant]
     Dosage: UNK
     Route: 065

REACTIONS (3)
  - Intervertebral disc disorder [Not Recovered/Not Resolved]
  - Inguinal hernia [Recovered/Resolved]
  - Spinal pain [Not Recovered/Not Resolved]
